FAERS Safety Report 5659999-8 (Version None)
Quarter: 2008Q1

REPORT INFORMATION
  Report Type: 
  Country: None (occurrence: None)
  Receive Date: 20080306
  Receipt Date: 20080221
  Transmission Date: 20080703
  Serious: Yes (Other)
  Sender: FDA-Public Use
  Company Number: CERZ-1000051

PATIENT
  Age: 19 Year
  Sex: Male
  Weight: 78.5 kg

DRUGS (2)
  1. CEREZYME [Suspect]
     Indication: GAUCHER'S DISEASE
     Dosage: 50 U/KG, Q2W, INTRAVENOUS, 60 U/KG, Q2W, INTRAVENOUS
     Route: 042
     Dates: start: 20030901, end: 20051101
  2. CEREZYME [Suspect]
     Indication: GAUCHER'S DISEASE
     Dosage: 50 U/KG, Q2W, INTRAVENOUS, 60 U/KG, Q2W, INTRAVENOUS
     Route: 042
     Dates: start: 20051101

REACTIONS (7)
  - BIPOLAR I DISORDER [None]
  - DEPRESSION [None]
  - DISEASE PROGRESSION [None]
  - GAUCHER'S DISEASE [None]
  - HYPERTENSION [None]
  - MANIA [None]
  - RENAL ARTERY STENOSIS [None]
